FAERS Safety Report 5413258-7 (Version None)
Quarter: 2007Q3

REPORT INFORMATION
  Report Type: 
  Country: None (occurrence: None)
  Receive Date: 20070814
  Receipt Date: 20060807
  Transmission Date: 20080115
  Serious: No
  Sender: FDA-Public Use
  Company Number: US-KINGPHARMUSA00001-K200601022

PATIENT

DRUGS (1)
  1. DELESTROGEN [Suspect]
     Dosage: 5 ML, SINGLE
     Route: 030
     Dates: start: 20060804, end: 20060804

REACTIONS (4)
  - INJECTION SITE CELLULITIS [None]
  - MEDICATION ERROR [None]
  - NAUSEA [None]
  - VOMITING [None]
